FAERS Safety Report 4820903-3 (Version None)
Quarter: 2005Q4

REPORT INFORMATION
  Report Type: 
  Country: None (occurrence: None)
  Receive Date: 20051104
  Receipt Date: 20051025
  Transmission Date: 20060501
  Serious: Yes (Hospitalization)
  Sender: FDA-Public Use
  Company Number: AT-AVENTIS-200514071EU

PATIENT
  Sex: Male
  Weight: 84 kg

DRUGS (5)
  1. LOVENOX [Suspect]
     Indication: ANGIOPLASTY
     Route: 058
     Dates: start: 20050719
  2. METFORMIN HYDROCHLORIDE [Concomitant]
     Indication: DIABETES MELLITUS
  3. PANTOPRAZOL [Concomitant]
  4. ASPIRIN [Concomitant]
     Indication: PERIPHERAL VASCULAR DISORDER
     Dates: start: 20050720
  5. CLOPIDOGREL BISULFATE [Concomitant]
     Indication: PERIPHERAL VASCULAR DISORDER
     Dates: start: 20050720

REACTIONS (1)
  - VASCULAR PSEUDOANEURYSM [None]
